FAERS Safety Report 7378825-2 (Version None)
Quarter: 2011Q1

REPORT INFORMATION
  Report Type: 
  Country: None (occurrence: None)
  Receive Date: 20110317
  Receipt Date: 20110310
  Transmission Date: 20110831
  Serious: Yes (Life-Threatening)
  Sender: FDA-Public Use
  Company Number: CIP11000600

PATIENT
  Age: 86 Year
  Sex: Female

DRUGS (7)
  1. TETRAMIDE (MIANSERIN HYDROCHLORIDE) [Suspect]
     Indication: DEPRESSION
     Dosage: 10 MG, ORAL; 25 MG, ORAL
     Route: 048
     Dates: end: 20110127
  2. TETRAMIDE (MIANSERIN HYDROCHLORIDE) [Suspect]
     Indication: DEPRESSION
     Dosage: 10 MG, ORAL; 25 MG, ORAL
     Route: 048
     Dates: end: 20110127
  3. TOLEDOMIN (MILNACIPRAN HYDROCHLORIDE) [Suspect]
     Indication: DEPRESSION
     Dosage: 50 MG, ORAL
     Route: 048
     Dates: start: 20110128
  4. ANTIHYPERTENSIVES [Concomitant]
  5. DUROTEP (FENTANYL) [Concomitant]
  6. RISEDRONATE SODIUM [Suspect]
     Indication: OSTEOPOROSIS
     Dosage: 17.5 MG ONE DOSE ONLY, ORAL
     Route: 048
     Dates: start: 20110121, end: 20110121
  7. HALOPERIDOL [Suspect]
     Indication: DEPRESSION
     Dosage: 1 MG, ORAL
     Route: 048
     Dates: end: 20110127

REACTIONS (9)
  - AKATHISIA [None]
  - SUICIDE ATTEMPT [None]
  - DYSSTASIA [None]
  - GAIT DISTURBANCE [None]
  - MUSCULAR WEAKNESS [None]
  - DECREASED APPETITE [None]
  - CONDITION AGGRAVATED [None]
  - TREMOR [None]
  - DEPRESSION [None]
